FAERS Safety Report 6331758-2 (Version None)
Quarter: 2009Q3

REPORT INFORMATION
  Report Type: 
  Country: None (occurrence: None)
  Receive Date: 20090826
  Receipt Date: 20090817
  Transmission Date: 20100115
  Serious: Yes (Other)
  Sender: FDA-Public Use
  Company Number: OPER20090153

PATIENT
  Sex: Male

DRUGS (1)
  1. OPANA ER [Suspect]

REACTIONS (2)
  - DRUG ABUSE [None]
  - SELF-MEDICATION [None]
